FAERS Safety Report 5611713-8 (Version None)
Quarter: 2008Q1

REPORT INFORMATION
  Report Type: 
  Country: None (occurrence: None)
  Receive Date: 20080201
  Receipt Date: 20080124
  Transmission Date: 20080703
  Serious: Yes (Hospitalization, Disabling)
  Sender: FDA-Public Use
  Company Number: JP-MERCK-0801USA03028

PATIENT
  Age: 1 Year
  Sex: Male

DRUGS (7)
  1. SINGULAIR [Suspect]
     Indication: ASTHMA
     Route: 048
     Dates: start: 20071216, end: 20071228
  2. MUCODYNE [Concomitant]
     Indication: ASTHMA
     Route: 048
     Dates: start: 20071216, end: 20071228
  3. PROCATEROL HYDROCHLORIDE [Concomitant]
     Route: 048
     Dates: start: 20071216, end: 20071228
  4. TIPEPIDINE HIBENZATE [Concomitant]
     Route: 048
     Dates: start: 20071209, end: 20071216
  5. CYPROHEPTADINE HYDROCHLORIDE [Concomitant]
     Route: 048
     Dates: start: 20071209, end: 20071216
  6. CLOSTRIDIUM BUTYRICUM [Concomitant]
     Route: 048
     Dates: start: 20071209, end: 20071212
  7. LOPERAMIDE HYDROCHLORIDE [Concomitant]
     Route: 048
     Dates: start: 20071207, end: 20071212

REACTIONS (1)
  - PLATELET COUNT DECREASED [None]
